FAERS Safety Report 19034077 (Version 1)
Quarter: 2021Q1

REPORT INFORMATION
  Report Type: Spontaneous
  Country: GB (occurrence: GB)
  Receive Date: 20210319
  Receipt Date: 20210319
  Transmission Date: 20210420
  Serious: Yes (Other)
  Sender: FDA-Public Use
  Company Number: NVSC2021GB021378

PATIENT
  Age: 64 Year
  Sex: Male

DRUGS (4)
  1. COSENTYX [Suspect]
     Active Substance: SECUKINUMAB
     Indication: ANKYLOSING SPONDYLITIS
     Dosage: UNK
     Route: 058
     Dates: start: 202009
  2. PIROXICAM. [Concomitant]
     Active Substance: PIROXICAM
     Indication: ANKYLOSING SPONDYLITIS
     Dosage: 20 MG, QD
     Route: 048
  3. CITALOPRAM [Concomitant]
     Active Substance: CITALOPRAM HYDROBROMIDE
     Indication: DEPRESSION
     Dosage: 20 MG, QD
     Route: 048
  4. LOPERAMIDE [Concomitant]
     Active Substance: LOPERAMIDE
     Indication: INFLAMMATORY BOWEL DISEASE
     Dosage: 2 MG, BID
     Route: 048

REACTIONS (1)
  - Orchitis [Recovering/Resolving]

NARRATIVE: CASE EVENT DATE: 20200915
